FAERS Safety Report 8841033 (Version 2)
Quarter: 2013Q1

REPORT INFORMATION
  Report Type: Spontaneous
  Country: US (occurrence: US)
  Receive Date: 20121015
  Receipt Date: 20130319
  Transmission Date: 20140127
  Serious: Yes (Other)
  Sender: FDA-Public Use
  Company Number: US-ELI_LILLY_AND_COMPANY-US201210002325

PATIENT
  Sex: 0

DRUGS (1)
  1. PROZAC [Suspect]
     Dosage: 1 DF, UNKNOWN
     Route: 064

REACTIONS (5)
  - Ventricular extrasystoles [Unknown]
  - Autism [Unknown]
  - Attention deficit/hyperactivity disorder [Unknown]
  - Impaired gastric emptying [Unknown]
  - Foetal exposure during pregnancy [Unknown]
